FAERS Safety Report 8215278-6 (Version None)
Quarter: 2012Q1

REPORT INFORMATION
  Report Type: 
  Country: None (occurrence: None)
  Receive Date: 20120314
  Receipt Date: 20120305
  Transmission Date: 20120608
  Serious: Yes (Other)
  Sender: FDA-Public Use
  Company Number: 2010MA001324

PATIENT
  Sex: Female
  Weight: 58.0604 kg

DRUGS (16)
  1. HYDROCODONE BITARTRATE AND ACETAMINOPHEN [Concomitant]
  2. SKELAXIN [Concomitant]
  3. TRAZODONE HCL [Concomitant]
  4. VIGAMOX [Concomitant]
  5. CYCLOBENZAPRINE HCL [Concomitant]
  6. POTASSIUM [Concomitant]
  7. MEPROZINE [Concomitant]
  8. SUCRALFATE [Concomitant]
  9. METOCLOPRAMIDE HYDROCHLORIDE [Suspect]
     Indication: PROCEDURAL NAUSEA
     Dosage: 10 MG;BID;PO
     Route: 048
     Dates: start: 20080201, end: 20090301
  10. METOCLOPRAMIDE HYDROCHLORIDE [Suspect]
     Indication: PROCEDURAL VOMITING
     Dosage: 10 MG;BID;PO
     Route: 048
     Dates: start: 20080201, end: 20090301
  11. ONDANSETRON [Concomitant]
  12. XALATAN [Concomitant]
  13. PREVACID [Concomitant]
  14. METHYLPREDNISOLONE [Concomitant]
  15. PROCHLORPERAZINE [Concomitant]
  16. SERTRALINE HYDROCHLORIDE [Concomitant]

REACTIONS (6)
  - TARDIVE DYSKINESIA [None]
  - GRIMACING [None]
  - GLOSSODYNIA [None]
  - DRY MOUTH [None]
  - STOMATITIS [None]
  - PROTRUSION TONGUE [None]
